FAERS Safety Report 9799178 (Version 1)
Quarter: 2014Q1

REPORT INFORMATION
  Report Type: Spontaneous
  Country: US (occurrence: US)
  Receive Date: 20140106
  Receipt Date: 20140106
  Transmission Date: 20141002
  Serious: No
  Sender: FDA-Public Use
  Company Number: US-BAYER-2014-002030

PATIENT
  Age: 24 Year
  Sex: Male
  Weight: 136 kg

DRUGS (3)
  1. ALEVE CAPLET [Suspect]
     Indication: PYREXIA
     Route: 048
  2. ALEVE CAPLET [Suspect]
     Indication: PAIN
  3. MUCINEX [Concomitant]

REACTIONS (1)
  - Incorrect dose administered [None]
